FAERS Safety Report 18136754 (Version 2)
Quarter: 2020Q4

REPORT INFORMATION
  Report Type: Spontaneous
  Country: US (occurrence: US)
  Receive Date: 20200812
  Receipt Date: 20201228
  Transmission Date: 20210113
  Serious: No
  Sender: FDA-Public Use
  Company Number: US-SA-2020SA206794

PATIENT

DRUGS (6)
  1. DUPIXENT [Suspect]
     Active Substance: DUPILUMAB
     Indication: ASTHMA
     Dosage: 200 MG, QOW
     Route: 058
     Dates: start: 2019
  2. TOBI [Concomitant]
     Active Substance: TOBRAMYCIN
     Dosage: UNK
  3. XOLAIR [Concomitant]
     Active Substance: OMALIZUMAB
     Dosage: UNK
  4. PULMOZYME [Concomitant]
     Active Substance: DORNASE ALFA
     Dosage: UNK
  5. SYMDEKO [Concomitant]
     Active Substance: IVACAFTOR\TEZACAFTOR
     Dosage: UNK
  6. DUPIXENT [Suspect]
     Active Substance: DUPILUMAB
     Indication: CYSTIC FIBROSIS
     Dosage: 400 MG, 1X
     Route: 058
     Dates: start: 20191203, end: 20191203

REACTIONS (11)
  - Nausea [Recovered/Resolved]
  - Infection [Unknown]
  - Photophobia [Recovered/Resolved]
  - Crying [Recovered/Resolved]
  - Stress [Unknown]
  - Eye pain [Recovered/Resolved]
  - Fungal infection [Recovered/Resolved]
  - Product use in unapproved indication [Unknown]
  - Migraine [Recovered/Resolved]
  - Dry eye [Recovered/Resolved]
  - Dyspnoea [Unknown]

NARRATIVE: CASE EVENT DATE: 201911
